FAERS Safety Report 7183910-4 (Version None)
Quarter: 2010Q4

REPORT INFORMATION
  Report Type: 
  Country: None (occurrence: None)
  Receive Date: 20101222
  Receipt Date: 20101210
  Transmission Date: 20110411
  Serious: Yes (Other)
  Sender: FDA-Public Use
  Company Number: US-ROCHE-747876

PATIENT
  Sex: Male

DRUGS (3)
  1. ACCUTANE [Suspect]
     Route: 065
     Dates: start: 20030801, end: 20030901
  2. ACCUTANE [Suspect]
     Route: 065
     Dates: start: 20031201, end: 20040201
  3. AMNESTEEM [Suspect]
     Indication: ACNE
     Route: 065
     Dates: start: 20030901, end: 20031201

REACTIONS (2)
  - ANXIETY [None]
  - INFLAMMATORY BOWEL DISEASE [None]
